FAERS Safety Report 9467573 (Version 2)
Quarter: 2013Q3

REPORT INFORMATION
  Report Type: Spontaneous
  Country: DE (occurrence: DE)
  Receive Date: 20130821
  Receipt Date: 20130829
  Transmission Date: 20140515
  Serious: Yes (Disabling)
  Sender: FDA-Public Use
  Company Number: DE-GENZYME-POMP-1003204

PATIENT
  Sex: Male
  Weight: 50 kg

DRUGS (1)
  1. MYOZYME [Suspect]
     Indication: GLYCOGEN STORAGE DISEASE TYPE II
     Dosage: 1 MG/KG, Q2W
     Route: 042
     Dates: start: 200909

REACTIONS (1)
  - Paresis [Not Recovered/Not Resolved]
